FAERS Safety Report 7630044-8 (Version None)
Quarter: 2011Q3

REPORT INFORMATION
  Report Type: 
  Country: None (occurrence: None)
  Receive Date: 20110722
  Receipt Date: 20110714
  Transmission Date: 20111222
  Serious: Yes (Hospitalization, Other)
  Sender: FDA-Public Use
  Company Number: US-RB-027819-11

PATIENT
  Age: 52 Year
  Sex: Male

DRUGS (2)
  1. SUBOXONE [Suspect]
     Indication: DRUG DEPENDENCE
     Route: 060
     Dates: start: 20110501
  2. SUBOXONE [Suspect]
     Indication: DRUG DEPENDENCE
     Dosage: DOSING INFORMATION UNKNOWN
     Route: 060
     Dates: start: 20110501

REACTIONS (4)
  - SUBSTANCE ABUSE [None]
  - MENTAL DISORDER DUE TO A GENERAL MEDICAL CONDITION [None]
  - CONDITION AGGRAVATED [None]
  - DEPRESSION [None]
